FAERS Safety Report 10090118 (Version 1)
Quarter: 2014Q2

REPORT INFORMATION
  Report Type: Spontaneous
  Country: US (occurrence: None)
  Receive Date: 20140417
  Receipt Date: 20140417
  Transmission Date: 20141212
  Serious: Yes (Hospitalization)
  Sender: FDA-Public Use
  Company Number: 2014RD000022

PATIENT
  Age: 34 Year
  Sex: Female

DRUGS (6)
  1. ALBUTEROL SULFATE (2.5 MG) [Suspect]
     Indication: BRONCHITIS
     Route: 055
  2. ALBUTEROL SULFATE (2.5 MG) [Suspect]
     Indication: ATYPICAL PNEUMONIA
     Route: 055
  3. METHYLPREDNISOLONE [Suspect]
     Indication: BRONCHITIS
  4. METHYLPREDNISOLONE [Suspect]
     Indication: ATYPICAL PNEUMONIA
  5. FLUOXETINE [Concomitant]
  6. AMITRIPTYLINE [Concomitant]

REACTIONS (7)
  - Hypokalaemia [None]
  - Tachycardia [None]
  - Pain in extremity [None]
  - Pain [None]
  - Muscular weakness [None]
  - Paralysis [None]
  - Condition aggravated [None]
